FAERS Safety Report 4712145-7 (Version None)
Quarter: 2005Q3

REPORT INFORMATION
  Report Type: 
  Country: None (occurrence: None)
  Receive Date: 20050712
  Receipt Date: 20050630
  Transmission Date: 20060218
  Serious: Yes (Death, Hospitalization, Other)
  Sender: FDA-Public Use
  Company Number: US-JNJFOC-20050700805

PATIENT
  Age: 57 Year
  Sex: Female

DRUGS (3)
  1. DOXIL [Suspect]
     Indication: OVARIAN CANCER
     Dosage: RECEIVED 6 CYCLES
     Route: 042
  2. GEMCITABINE [Suspect]
     Route: 042
  3. GEMCITABINE [Suspect]
     Indication: OVARIAN CANCER
     Route: 042

REACTIONS (1)
  - HAEMOLYTIC URAEMIC SYNDROME [None]
